FAERS Safety Report 16362691 (Version 1)
Quarter: 2019Q2

REPORT INFORMATION
  Report Type: Spontaneous
  Country: HU (occurrence: HU)
  Receive Date: 20190528
  Receipt Date: 20190528
  Transmission Date: 20190711
  Serious: Yes (Life-Threatening, Hospitalization)
  Sender: FDA-Public Use
  Company Number: HU-JNJFOC-20190532179

PATIENT
  Age: 21 Year
  Sex: Female

DRUGS (5)
  1. HALOPERIDOL. [Suspect]
     Active Substance: HALOPERIDOL
     Indication: INTELLECTUAL DISABILITY
     Route: 048
     Dates: start: 20190429
  2. REXETIN [Concomitant]
     Active Substance: PAROXETINE HYDROCHLORIDE
     Indication: INTELLECTUAL DISABILITY
     Route: 048
     Dates: start: 20190417
  3. TEGRETOL [Concomitant]
     Active Substance: CARBAMAZEPINE
     Indication: INTELLECTUAL DISABILITY
     Dosage: HALF TABLET MORNING AND ONE TABLET EVENING
     Route: 065
     Dates: start: 20190429
  4. HELEX [Concomitant]
     Active Substance: ALPRAZOLAM
     Indication: INTELLECTUAL DISABILITY
     Dosage: ONE TABLET MORNING AND TWO TABLETS EVENING
     Route: 048
     Dates: start: 20190429
  5. TIAPRIDAL [Concomitant]
     Active Substance: TIAPRIDE HYDROCHLORIDE
     Indication: INTELLECTUAL DISABILITY
     Route: 048
     Dates: start: 20190429

REACTIONS (7)
  - Neuroleptic malignant syndrome [Recovered/Resolved]
  - Altered state of consciousness [Recovered/Resolved]
  - Respiratory failure [Recovered/Resolved]
  - Product use in unapproved indication [Unknown]
  - Pyrexia [Recovered/Resolved]
  - Tachycardia [Recovered/Resolved]
  - Off label use [Unknown]

NARRATIVE: CASE EVENT DATE: 201904
